FAERS Safety Report 6872249-X (Version None)
Quarter: 2010Q3

REPORT INFORMATION
  Report Type: 
  Country: None (occurrence: None)
  Receive Date: 20100723
  Receipt Date: 20100709
  Transmission Date: 20110219
  Serious: Yes (Hospitalization)
  Sender: FDA-Public Use
  Company Number: US-ELI_LILLY_AND_COMPANY-US201005006968

PATIENT
  Sex: Female

DRUGS (15)
  1. FORTEO [Suspect]
     Indication: OSTEOPOROSIS
     Dosage: 20 UG, DAILY (1/D)
     Dates: start: 20081101, end: 20100401
  2. FORTEO [Suspect]
     Dosage: 20 UG, DAILY (1/D)
     Dates: start: 20100526
  3. PROVIGIL [Concomitant]
  4. ADVAIR DISKUS 100/50 [Concomitant]
  5. COUMADIN [Concomitant]
  6. NORVASC [Concomitant]
  7. DIOVAN [Concomitant]
  8. GLIMEPIRIDE [Concomitant]
  9. ZOLOFT [Concomitant]
  10. CITRACAL [Concomitant]
  11. VITAMIN D [Concomitant]
  12. ACTOS [Concomitant]
  13. ZOCOR [Concomitant]
  14. XANAX [Concomitant]
  15. ULTRASE MT20 [Concomitant]

REACTIONS (3)
  - INCOHERENT [None]
  - ISCHAEMIC STROKE [None]
  - MENTAL STATUS CHANGES [None]
